FAERS Safety Report 6558002-5 (Version None)
Quarter: 2010Q1

REPORT INFORMATION
  Report Type: 
  Country: None (occurrence: None)
  Receive Date: 20100129
  Receipt Date: 20100119
  Transmission Date: 20100710
  Serious: Yes (Hospitalization)
  Sender: FDA-Public Use
  Company Number: DE-ELI_LILLY_AND_COMPANY-DE201001003876

PATIENT
  Age: 42 Year
  Sex: Female

DRUGS (7)
  1. ZYPREXA [Suspect]
     Dosage: 15 MG, DAILY (1/D)
     Route: 065
     Dates: start: 20070101, end: 20070301
  2. ZYPREXA [Suspect]
     Dosage: 20 MG, DAILY (1/D)
     Route: 065
     Dates: start: 20070302, end: 20070419
  3. EDRONAX /01350601/ [Concomitant]
     Dosage: 8 MG, DAILY (1/D)
     Route: 065
     Dates: start: 20070322, end: 20070404
  4. EDRONAX /01350601/ [Concomitant]
     Dosage: 12 MG, DAILY (1/D)
     Route: 065
     Dates: start: 20070405, end: 20070506
  5. ZOLOFT [Concomitant]
     Dosage: 200 MG, DAILY (1/D)
     Route: 065
     Dates: start: 20070101, end: 20070419
  6. LAMICTAL [Concomitant]
     Dosage: 200 MG, DAILY (1/D)
     Route: 065
     Dates: start: 20070101, end: 20070419
  7. TIMONIL [Concomitant]
     Dosage: 1200 MG, DAILY (1/D)
     Route: 065
     Dates: start: 20070316, end: 20070405

REACTIONS (3)
  - HYPERSENSITIVITY [None]
  - RASH [None]
  - SKIN REACTION [None]
